FAERS Safety Report 6717543-8 (Version None)
Quarter: 2010Q2

REPORT INFORMATION
  Report Type: 
  Country: None (occurrence: None)
  Receive Date: 20100507
  Receipt Date: 20100507
  Transmission Date: 20101027
  Serious: No
  Sender: FDA-Public Use
  Company Number: None

PATIENT
  Age: 51 Year
  Sex: Female
  Weight: 90.7194 kg

DRUGS (2)
  1. ZETIA [Suspect]
     Indication: BLOOD CHOLESTEROL ABNORMAL
     Dates: start: 20091201, end: 20100215
  2. ZETIA [Suspect]
     Indication: CARDIAC DISORDER
     Dates: start: 20091201, end: 20100215

REACTIONS (2)
  - ALOPECIA [None]
  - PRURITUS GENERALISED [None]
